FAERS Safety Report 25149469 (Version 2)
Quarter: 2025Q2

REPORT INFORMATION
  Report Type: Spontaneous
  Country: US (occurrence: US)
  Receive Date: 20250402
  Receipt Date: 20250408
  Transmission Date: 20250716
  Serious: No
  Sender: AMGEN
  Company Number: US-AMGEN-USASP2025060133

PATIENT
  Age: 81 Year
  Sex: Female

DRUGS (22)
  1. REPATHA [Suspect]
     Active Substance: EVOLOCUMAB
     Indication: Angina pectoris
     Dosage: 140 MILLIGRAM, Q2WK (THIRD INJECTION)
     Route: 058
     Dates: start: 20250224
  2. REPATHA [Suspect]
     Active Substance: EVOLOCUMAB
     Indication: Blood cholesterol abnormal
  3. LOSARTAN [Concomitant]
     Active Substance: LOSARTAN
     Indication: Myocardial infarction
     Dates: start: 202310
  4. LOSARTAN [Concomitant]
     Active Substance: LOSARTAN
     Indication: Product used for unknown indication
  5. LOSARTAN [Concomitant]
     Active Substance: LOSARTAN
  6. LOSARTAN [Concomitant]
     Active Substance: LOSARTAN
  7. CIPRO [Concomitant]
     Active Substance: CIPROFLOXACIN HYDROCHLORIDE
     Indication: Product used for unknown indication
  8. CIPRO [Concomitant]
     Active Substance: CIPROFLOXACIN HYDROCHLORIDE
  9. CIPRO [Concomitant]
     Active Substance: CIPROFLOXACIN HYDROCHLORIDE
  10. METOPROLOL [Concomitant]
     Active Substance: METOPROLOL
     Indication: Blood pressure abnormal
  11. METOPROLOL [Concomitant]
     Active Substance: METOPROLOL
     Indication: Product used for unknown indication
  12. METOPROLOL [Concomitant]
     Active Substance: METOPROLOL
  13. ZETIA [Concomitant]
     Active Substance: EZETIMIBE
     Indication: Blood cholesterol abnormal
  14. XANAX [Concomitant]
     Active Substance: ALPRAZOLAM
     Indication: Anxiety
  15. XANAX [Concomitant]
     Active Substance: ALPRAZOLAM
  16. CLARITIN [Concomitant]
     Active Substance: LORATADINE
     Indication: Hypersensitivity
  17. CLARITIN [Concomitant]
     Active Substance: LORATADINE
     Indication: Seasonal allergy
  18. CLARITIN [Concomitant]
     Active Substance: LORATADINE
     Indication: Sneezing
  19. CLARITIN [Concomitant]
     Active Substance: LORATADINE
     Indication: Product used for unknown indication
  20. NITROGLYCERIN [Concomitant]
     Active Substance: NITROGLYCERIN
     Indication: Angina pectoris
  21. NITROGLYCERIN [Concomitant]
     Active Substance: NITROGLYCERIN
     Indication: Product used for unknown indication
  22. NITROGLYCERIN [Concomitant]
     Active Substance: NITROGLYCERIN

REACTIONS (7)
  - Stress [Unknown]
  - Road traffic accident [Unknown]
  - Device difficult to use [Unknown]
  - Incorrect dose administered by device [Unknown]
  - Accidental exposure to product [Unknown]
  - Anxiety [Unknown]
  - Injection site pain [Unknown]

NARRATIVE: CASE EVENT DATE: 20250301
